FAERS Safety Report 9130932 (Version 2)
Quarter: 2013Q1

REPORT INFORMATION
  Report Type: Spontaneous
  Country: US (occurrence: US)
  Receive Date: 20130301
  Receipt Date: 20130315
  Transmission Date: 20140127
  Serious: Yes (Hospitalization, Other)
  Sender: FDA-Public Use
  Company Number: US-PFIZER INC-2013072607

PATIENT
  Age: 89 Year
  Sex: Male
  Weight: 65.76 kg

DRUGS (1)
  1. LIPITOR [Suspect]
     Dosage: 10 MG, DAILY
     Route: 048
     Dates: end: 20130222

REACTIONS (1)
  - Bladder obstruction [Not Recovered/Not Resolved]
